FAERS Safety Report 7462733-2 (Version None)
Quarter: 2011Q2

REPORT INFORMATION
  Report Type: 
  Country: None (occurrence: None)
  Receive Date: 20110506
  Receipt Date: 20110430
  Transmission Date: 20111010
  Serious: Yes (Death)
  Sender: FDA-Public Use
  Company Number: TN-SANOFI-AVENTIS-2011SA026947

PATIENT
  Age: 76 Year
  Sex: Male

DRUGS (8)
  1. GLUCOPHAGE [Concomitant]
     Route: 048
     Dates: end: 20110429
  2. PLAVIX [Suspect]
     Route: 048
     Dates: start: 20110420, end: 20110429
  3. PLAVIX [Suspect]
     Indication: MYOCARDIAL INFARCTION
     Route: 048
     Dates: start: 20110420, end: 20110429
  4. ASPIRIN [Concomitant]
     Route: 048
     Dates: end: 20110429
  5. ATORVASTATIN [Concomitant]
     Route: 048
     Dates: end: 20110429
  6. MOPRAL [Concomitant]
     Route: 048
     Dates: end: 20110429
  7. NEBIVOLOL HCL [Concomitant]
     Route: 048
     Dates: end: 20110429
  8. MOLSIDOMINA [Concomitant]
     Route: 048
     Dates: end: 20110429

REACTIONS (1)
  - CARDIOGENIC SHOCK [None]
